FAERS Safety Report 10393535 (Version 2)
Quarter: 2014Q3

REPORT INFORMATION
  Report Type: Report from Study
  Country: US (occurrence: US)
  Receive Date: 20140819
  Receipt Date: 20140827
  Transmission Date: 20150326
  Serious: Yes (Hospitalization, Disabling, Other)
  Sender: FDA-Public Use
  Company Number: US-SA-2014SA109742

PATIENT
  Age: 40 Year

DRUGS (1)
  1. AUBAGIO [Suspect]
     Active Substance: TERIFLUNOMIDE
     Indication: MULTIPLE SCLEROSIS
     Dosage: FREQUENCY:DIE
     Route: 048
     Dates: start: 201402

REACTIONS (2)
  - Central nervous system lesion [Not Recovered/Not Resolved]
  - Hemiplegia [Not Recovered/Not Resolved]

NARRATIVE: CASE EVENT DATE: 20140801
